FAERS Safety Report 6150209-4 (Version None)
Quarter: 2009Q2

REPORT INFORMATION
  Report Type: 
  Country: None (occurrence: None)
  Receive Date: 20090408
  Receipt Date: 20090408
  Transmission Date: 20091009
  Serious: No
  Sender: FDA-Public Use
  Company Number: None

PATIENT
  Age: 42 Year
  Sex: Female
  Weight: 141.9759 kg

DRUGS (1)
  1. LEVOTHYROXINE SODIUM [Suspect]
     Indication: HYPOTHYROIDISM
     Dosage: 150MCG 1 TAB DAILY PO
     Route: 048
     Dates: start: 20070701

REACTIONS (2)
  - ANAPHYLACTIC REACTION [None]
  - REACTION TO DRUG EXCIPIENTS [None]
